FAERS Safety Report 6185576-9 (Version None)
Quarter: 2009Q2

REPORT INFORMATION
  Report Type: 
  Country: None (occurrence: None)
  Receive Date: 20090511
  Receipt Date: 20090429
  Transmission Date: 20091009
  Serious: Yes (Other)
  Sender: FDA-Public Use
  Company Number: US-PFIZER INC-2005051671

PATIENT
  Sex: Female
  Weight: 58 kg

DRUGS (5)
  1. PROVERA [Suspect]
     Indication: HORMONE REPLACEMENT THERAPY
     Dosage: UNK
     Route: 048
     Dates: start: 19940101, end: 19950101
  2. OGEN [Suspect]
     Indication: HORMONE REPLACEMENT THERAPY
     Dosage: UNK
     Dates: start: 19950101
  3. PREMARIN [Suspect]
     Indication: HORMONE REPLACEMENT THERAPY
     Dosage: UNK
     Dates: start: 19940101, end: 19990101
  4. PREMPRO [Suspect]
     Indication: HORMONE REPLACEMENT THERAPY
     Dosage: UNK
     Dates: start: 19970101, end: 19980101
  5. PREMPHASE 14/14 [Suspect]
     Indication: HORMONE REPLACEMENT THERAPY
     Dosage: UNK
     Dates: start: 19950101, end: 19980101

REACTIONS (1)
  - BREAST CANCER FEMALE [None]
